FAERS Safety Report 4913506-3 (Version None)
Quarter: 2006Q1

REPORT INFORMATION
  Report Type: 
  Country: None (occurrence: None)
  Receive Date: 20060210
  Receipt Date: 20060127
  Transmission Date: 20060701
  Serious: Yes (Hospitalization, Disabling, Other)
  Sender: FDA-Public Use
  Company Number: 2006020001

PATIENT
  Age: 81 Year
  Sex: Male

DRUGS (7)
  1. DORAL [Suspect]
     Indication: INSOMNIA
     Dosage: 15 MG, 1 IN 1 D, ORAL
     Route: 048
     Dates: start: 20041116, end: 20051129
  2. ZOLPIDEM TARTRATE [Suspect]
     Indication: INSOMNIA
     Dosage: 10 MG, 1 IN 1 D,
     Dates: start: 20041116, end: 20051129
  3. ACETYLSALICYLIC ACID SRT [Concomitant]
  4. SELBEX (TEPRENONE) [Concomitant]
  5. ARICEPT [Concomitant]
  6. EUGLUCON (GLIBENCLAMIDE) [Concomitant]
  7. NICERGOLINE [Concomitant]

REACTIONS (11)
  - BRADYKINESIA [None]
  - CHEYNE-STOKES RESPIRATION [None]
  - DEPRESSED LEVEL OF CONSCIOUSNESS [None]
  - DRUG SCREEN POSITIVE [None]
  - DRUG TOXICITY [None]
  - FALL [None]
  - HEPATIC CONGESTION [None]
  - HYPOMETABOLISM [None]
  - NASOPHARYNGITIS [None]
  - PYREXIA [None]
  - SUBDURAL HAEMATOMA [None]
